FAERS Safety Report 10069670 (Version 1)
Quarter: 2014Q2

REPORT INFORMATION
  Report Type: Spontaneous
  Country: SE (occurrence: SE)
  Receive Date: 20140410
  Receipt Date: 20140410
  Transmission Date: 20141212
  Serious: Yes (Hospitalization)
  Sender: FDA-Public Use
  Company Number: SE-BRISTOL-MYERS SQUIBB COMPANY-20584439

PATIENT
  Sex: Female

DRUGS (1)
  1. ELIQUIS [Suspect]
     Dosage: TABS

REACTIONS (1)
  - Diarrhoea [Unknown]
